FAERS Safety Report 13708635 (Version 1)
Quarter: 2017Q2

REPORT INFORMATION
  Report Type: Report from Study
  Country: US (occurrence: US)
  Receive Date: 20170630
  Receipt Date: 20170630
  Transmission Date: 20170830
  Serious: Yes (Hospitalization)
  Sender: FDA-Public Use
  Company Number: US-ACTELION-A-US2017-156171

PATIENT
  Age: 1 Year
  Sex: Male

DRUGS (11)
  1. TRACLEER [Suspect]
     Active Substance: BOSENTAN
     Indication: PULMONARY ARTERIAL HYPERTENSION
     Dosage: 15.625 MG, QD
     Route: 048
     Dates: start: 20170612
  2. FUROSEMIDE. [Concomitant]
     Active Substance: FUROSEMIDE
     Dosage: 10 MG/ML, UNK
     Dates: start: 20170428, end: 20170627
  3. POLY VI SOL [Concomitant]
     Dosage: UNK
     Dates: start: 20170203, end: 20170404
  4. VITAMIN D W/VITAMIN E [Concomitant]
     Dosage: 400 UNITS
     Dates: start: 20170130, end: 20170324
  5. SILDENAFIL. [Concomitant]
     Active Substance: SILDENAFIL
     Dosage: UNK
     Dates: start: 20170612
  6. SODIUM CHLORIDE. [Concomitant]
     Active Substance: SODIUM CHLORIDE
     Dosage: 4 MEQ, UNK
     Dates: start: 20170429, end: 20170628
  7. EPANED [Concomitant]
     Active Substance: ENALAPRIL MALEATE
     Dosage: 1 MG/ML, UNK
     Dates: start: 20170428, end: 20170627
  8. FIRST OMEPRAZOLE RX [Concomitant]
     Active Substance: OMEPRAZOLE
     Dosage: 2 MG/ML
     Dates: start: 20170504, end: 2017
  9. POLYVITAMIN [Concomitant]
     Active Substance: VITAMINS
     Dosage: UNK
     Dates: start: 20170428, end: 20170627
  10. RANITIDINE. [Concomitant]
     Active Substance: RANITIDINE
     Dosage: 75 MG/ 5ML, UNK
     Dates: start: 20170428, end: 20170627
  11. DIURIL [Concomitant]
     Active Substance: CHLOROTHIAZIDE
     Dosage: 250/5 ML
     Dates: start: 20170502, end: 20170627

REACTIONS (3)
  - Complication associated with device [Unknown]
  - Product use issue [Unknown]
  - Infection [Unknown]
